FAERS Safety Report 23561846 (Version 1)
Quarter: 2024Q1

REPORT INFORMATION
  Report Type: Other
  Country: US (occurrence: None)
  Receive Date: 20240225
  Receipt Date: 20240225
  Transmission Date: 20240410
  Serious: No
  Sender: FDA-Public Use
  Company Number: None

PATIENT
  Age: 51 Year
  Sex: Male

DRUGS (7)
  1. FENTANYL [Suspect]
     Active Substance: FENTANYL\FENTANYL CITRATE
     Indication: Product used for unknown indication
  2. HALOPERIDOL [Concomitant]
     Active Substance: HALOPERIDOL
     Indication: Hallucination
     Dosage: 5 MILLIGRAM TWICE DAILY
  3. OLANZAPINE [Concomitant]
     Active Substance: OLANZAPINE
     Indication: Hallucination
     Dosage: 5 MILLIGRAM PER DAY
  4. PHENOBARBITAL [Concomitant]
     Active Substance: PHENOBARBITAL
     Indication: Alcohol withdrawal syndrome
     Dosage: TOTAL OF 1,950 MILLIGRAM
  5. PERMETHRIN [Concomitant]
     Active Substance: PERMETHRIN
     Indication: Infection prophylaxis
     Dosage: 5 PERCENT TOPICAL CREAM
     Route: 061
  6. QUETIAPINE [Concomitant]
     Active Substance: QUETIAPINE
     Indication: Hallucination
  7. QUETIAPINE [Concomitant]
     Active Substance: QUETIAPINE
     Indication: Hallucination

REACTIONS (1)
  - Drug use disorder [Unknown]
